FAERS Safety Report 12772458 (Version 1)
Quarter: 2016Q3

REPORT INFORMATION
  Report Type: Spontaneous
  Country: US (occurrence: US)
  Receive Date: 20160922
  Receipt Date: 20160922
  Transmission Date: 20161109
  Serious: No
  Sender: FDA-Public Use
  Company Number: US-ACTAVIS-2016-05515

PATIENT
  Age: 57 Year
  Sex: Female

DRUGS (1)
  1. BUTALBITAL/ASPIRIN/CAFFEINE/CODEINE 50/325/40/30 (WATSON LABORATORIES) [Suspect]
     Active Substance: ASPIRIN\BUTALBITAL\CAFFEINE\CODEINE PHOSPHATE
     Indication: HEADACHE
     Dosage: UNK UNK, UNKNOWN
     Route: 048

REACTIONS (5)
  - Pain [Recovered/Resolved]
  - Somnolence [Recovered/Resolved]
  - Pharyngeal oedema [Recovered/Resolved]
  - Headache [Recovered/Resolved]
  - Chest discomfort [Recovered/Resolved]

NARRATIVE: CASE EVENT DATE: 20160309
